FAERS Safety Report 10708074 (Version 1)
Quarter: 2015Q1

REPORT INFORMATION
  Report Type: Spontaneous
  Country: US (occurrence: US)
  Receive Date: 20150113
  Receipt Date: 20150113
  Transmission Date: 20150721
  Serious: Yes (Death)
  Sender: FDA-Public Use
  Company Number: US-BAYER-2015-003777

PATIENT
  Age: 35 Year
  Sex: Male

DRUGS (3)
  1. DIPHENHYDRAMINE HYDROCHLORIDE. [Suspect]
     Active Substance: DIPHENHYDRAMINE HYDROCHLORIDE
  2. ETHANOL [Suspect]
     Active Substance: ALCOHOL
  3. CARBON MONOXIDE [Suspect]
     Active Substance: CARBON MONOXIDE

REACTIONS (1)
  - Environmental exposure [Fatal]
